FAERS Safety Report 25286083 (Version 1)
Quarter: 2025Q2

REPORT INFORMATION
  Report Type: Spontaneous
  Country: FR (occurrence: FR)
  Receive Date: 20250509
  Receipt Date: 20250509
  Transmission Date: 20250717
  Serious: Yes (Hospitalization, Other)
  Sender: AUROBINDO
  Company Number: FR-AFSSAPS-PA2025000257

PATIENT
  Age: 61 Year
  Sex: Female
  Weight: 54 kg

DRUGS (20)
  1. LANSOPRAZOLE [Suspect]
     Active Substance: LANSOPRAZOLE
     Indication: Product used for unknown indication
     Route: 048
     Dates: start: 20240611
  2. PREDNISONE [Suspect]
     Active Substance: PREDNISONE
     Indication: Rheumatoid arthritis
     Dosage: 10 MILLIGRAM, ONCE A DAY
     Route: 048
     Dates: start: 20240615
  3. AUGMENTIN [Suspect]
     Active Substance: AMOXICILLIN\CLAVULANATE POTASSIUM
     Indication: Rheumatoid arthritis
     Route: 065
     Dates: start: 20240613, end: 20240617
  4. CEFOTAXIME [Suspect]
     Active Substance: CEFOTAXIME SODIUM
     Indication: Colitis
     Route: 065
     Dates: start: 20240617, end: 20240621
  5. PREDNISONE [Suspect]
     Active Substance: PREDNISONE
     Indication: Rheumatoid arthritis
     Route: 048
     Dates: start: 20240615
  6. ITRACONAZOLE [Suspect]
     Active Substance: ITRACONAZOLE
     Indication: Bronchopulmonary aspergillosis allergic
     Route: 048
     Dates: start: 202309
  7. FUROSEMIDE [Suspect]
     Active Substance: FUROSEMIDE
     Indication: Acute pulmonary oedema
     Dosage: 40 MILLIGRAM, ONCE A DAY
     Route: 042
     Dates: start: 20240614, end: 20240614
  8. FUROSEMIDE [Suspect]
     Active Substance: FUROSEMIDE
     Dosage: 40 MILLIGRAM, ONCE A DAY (40 MG IN THE MORNING)
     Route: 048
     Dates: start: 20240614, end: 20240618
  9. ENOXAPARIN SODIUM [Concomitant]
     Active Substance: ENOXAPARIN SODIUM
     Indication: Product used for unknown indication
     Route: 058
     Dates: start: 20240611
  10. DILTIAZEM [Concomitant]
     Active Substance: DILTIAZEM
     Indication: Product used for unknown indication
     Route: 048
     Dates: start: 20240611
  11. PHLOROGLUCINOL [Concomitant]
     Active Substance: PHLOROGLUCINOL
     Indication: Abdominal pain
     Dosage: 480 MILLIGRAM, ONCE A DAY (2 TABLETS OF 80 MG: 3 TIMES / DAY)
     Route: 048
     Dates: start: 20240611
  12. MORPHINE [Concomitant]
     Active Substance: MORPHINE
     Indication: Product used for unknown indication
     Dosage: 5 MILLIGRAM, FOUR TIMES/DAY (1 5 MG CAPSULE EVERY 6 HOURS IF EVA } 3)
     Route: 048
  13. ACETAMINOPHEN [Concomitant]
     Active Substance: ACETAMINOPHEN
     Indication: Pain
     Dosage: 3 GRAM, ONCE A DAY (1G X 3/J)
     Route: 048
  14. BECLOMETHASONE DIPROPIONATE [Concomitant]
     Active Substance: BECLOMETHASONE DIPROPIONATE
     Indication: Rhinitis
     Route: 045
  15. DESLORATADINE [Concomitant]
     Active Substance: DESLORATADINE
     Indication: Product used for unknown indication
     Dosage: 5 MILLIGRAM (5 MG IN THE MORNING)
     Route: 048
  16. CEFOTAXIME SODIUM [Concomitant]
     Active Substance: CEFOTAXIME SODIUM
     Indication: Colitis
     Dosage: 3 GRAM, ONCE A DAY (1 G X 3/J)
     Route: 065
     Dates: start: 20240618, end: 20240620
  17. NAPROXEN [Concomitant]
     Active Substance: NAPROXEN
     Indication: Polyarthritis
     Route: 048
     Dates: start: 202405, end: 20240606
  18. CLAFORAN [Concomitant]
     Active Substance: CEFOTAXIME SODIUM
     Indication: Colitis
     Dosage: 3 GRAM, ONCE A DAY
     Route: 065
     Dates: start: 20240618, end: 20240620
  19. PREDNISONE [Concomitant]
     Active Substance: PREDNISONE
     Indication: Product used for unknown indication
     Route: 065
  20. 1,3,5-TRIMETHOXYBENZENE [Concomitant]
     Active Substance: 1,3,5-TRIMETHOXYBENZENE
     Indication: Abdominal pain
     Dosage: 480 MILLIGRAM, ONCE A DAY (160 MILLIGRAM, TID)
     Route: 048
     Dates: start: 20240611

REACTIONS (3)
  - Hypokalaemia [Recovered/Resolved]
  - Alkalosis [Unknown]
  - Diarrhoea [Recovered/Resolved]

NARRATIVE: CASE EVENT DATE: 20240620
